FAERS Safety Report 4660676-0 (Version None)
Quarter: 2005Q2

REPORT INFORMATION
  Report Type: 
  Country: None (occurrence: None)
  Receive Date: 20050427
  Receipt Date: 20040609
  Transmission Date: 20051028
  Serious: Yes (Other)
  Sender: FDA-Public Use
  Company Number: US-JNJFOC-20040602819

PATIENT
  Age: 29 Year
  Sex: Male

DRUGS (3)
  1. ULTRAM [Suspect]
     Indication: DRUG USE FOR UNKNOWN INDICATION
     Dosage: ORAL
     Route: 048
  2. OXYCONTIN [Concomitant]
  3. COCAINE (COCAINE) [Concomitant]

REACTIONS (1)
  - DRUG ABUSER [None]
